FAERS Safety Report 25152384 (Version 1)
Quarter: 2025Q2

REPORT INFORMATION
  Report Type: Spontaneous
  Country: US (occurrence: US)
  Receive Date: 20250402
  Receipt Date: 20250402
  Transmission Date: 20250716
  Serious: Yes (Other)
  Sender: LEITERS COMPOUNDING PHARMACY
  Company Number: US-Leiters-2174129

PATIENT
  Age: 68 Year

DRUGS (1)
  1. MOXIFLOXACIN [Suspect]
     Active Substance: MOXIFLOXACIN
     Indication: Prophylaxis

REACTIONS (1)
  - Toxic anterior segment syndrome [Recovering/Resolving]
